FAERS Safety Report 15667300 (Version 1)
Quarter: 2018Q4

REPORT INFORMATION
  Report Type: Spontaneous
  Country: US (occurrence: US)
  Receive Date: 20181128
  Receipt Date: 20181128
  Transmission Date: 20190205
  Serious: Yes (Other)
  Sender: FDA-Public Use
  Company Number: US-ENDO PHARMACEUTICALS INC-2018-043073

PATIENT
  Age: 33 Year
  Sex: Female

DRUGS (3)
  1. PERCOCET [Suspect]
     Active Substance: ACETAMINOPHEN\OXYCODONE HYDROCHLORIDE
     Indication: BACK PAIN
     Dosage: 5 MG, UNKNOWN
     Route: 065
  2. PERCOCET [Suspect]
     Active Substance: ACETAMINOPHEN\OXYCODONE HYDROCHLORIDE
     Dosage: 10 MG, UNKNOWN
     Route: 065
  3. SOMA [Suspect]
     Active Substance: CARISOPRODOL
     Indication: BACK PAIN
     Dosage: UNK UNKNOWN, UNKNOWN
     Route: 065

REACTIONS (4)
  - Unresponsive to stimuli [Unknown]
  - Malaise [Unknown]
  - Loss of consciousness [Unknown]
  - Overdose [Unknown]

NARRATIVE: CASE EVENT DATE: 20160909
